FAERS Safety Report 5281941-2 (Version None)
Quarter: 2007Q1

REPORT INFORMATION
  Report Type: 
  Country: None (occurrence: None)
  Receive Date: 20070326
  Receipt Date: 20070315
  Transmission Date: 20070707
  Serious: Yes (Death, Hospitalization)
  Sender: FDA-Public Use
  Company Number: GXKR2007DK02610

PATIENT
  Age: 70 Year
  Sex: Female

DRUGS (1)
  1. DICLOFENAC SODIUM [Suspect]
     Indication: OSTEOARTHRITIS
     Dates: start: 20060626, end: 20060913

REACTIONS (10)
  - ABSCESS [None]
  - GASTRIC ULCER PERFORATION [None]
  - INCREASED UPPER AIRWAY SECRETION [None]
  - INFLAMMATION [None]
  - MULTI-ORGAN FAILURE [None]
  - NO THERAPEUTIC RESPONSE [None]
  - PERITONEAL DISORDER [None]
  - POST PROCEDURAL COMPLICATION [None]
  - PULMONARY CONGESTION [None]
  - SYNOVIAL CYST [None]
